FAERS Safety Report 4270227-0 (Version None)
Quarter: 2004Q1

REPORT INFORMATION
  Report Type: 
  Country: None (occurrence: None)
  Receive Date: 20040112
  Receipt Date: 20040112
  Transmission Date: 20041129
  Serious: Yes (Hospitalization)
  Sender: FDA-Public Use
  Company Number: None

PATIENT
  Age: 54 Year
  Sex: Male

DRUGS (6)
  1. SIMVASTATIN [Suspect]
     Indication: LIPIDS
     Dosage: 800 MG QD
     Dates: start: 20020101
  2. NAPROXEN [Suspect]
     Indication: PAIN
     Dosage: 500 MG BID
     Dates: start: 20010701
  3. GEMFIBROZIL [Suspect]
     Dosage: 600 MG BID
     Dates: start: 19991201
  4. ACIPHEX [Concomitant]
  5. MAXZIDE [Concomitant]
  6. METOPROLOL [Concomitant]

REACTIONS (2)
  - RENAL FAILURE ACUTE [None]
  - RHABDOMYOLYSIS [None]
